FAERS Safety Report 5746662-8 (Version None)
Quarter: 2008Q2

REPORT INFORMATION
  Report Type: 
  Country: None (occurrence: None)
  Receive Date: 20080522
  Receipt Date: 20080514
  Transmission Date: 20081010
  Serious: Yes (Death, Hospitalization)
  Sender: FDA-Public Use
  Company Number: US-BAYER-200810044GPV

PATIENT
  Age: 79 Year
  Sex: Female

DRUGS (4)
  1. DACARBAZINE [Suspect]
     Indication: MALIGNANT MELANOMA
     Route: 042
     Dates: start: 20071205, end: 20071205
  2. DACARBAZINE [Suspect]
     Route: 042
     Dates: start: 20071024, end: 20071024
  3. IPILIMUMAB OR PLACEBO [Suspect]
     Indication: MALIGNANT MELANOMA
     Route: 042
     Dates: start: 20071205, end: 20071205
  4. IPILIMUMAB OR PLACEBO [Suspect]
     Route: 042
     Dates: start: 20071024

REACTIONS (3)
  - HEPATIC FAILURE [None]
  - METASTATIC MALIGNANT MELANOMA [None]
  - PNEUMONIA [None]
